FAERS Safety Report 6174456-0 (Version None)
Quarter: 2009Q2

REPORT INFORMATION
  Report Type: 
  Country: None (occurrence: None)
  Receive Date: 20090430
  Receipt Date: 20080613
  Transmission Date: 20091009
  Serious: No
  Sender: FDA-Public Use
  Company Number: US-ASTRAZENECA-2008UW11998

PATIENT
  Age: 68 Year
  Sex: Female
  Weight: 63.5 kg

DRUGS (5)
  1. NEXIUM [Suspect]
     Indication: GASTROOESOPHAGEAL REFLUX DISEASE
     Route: 048
  2. EVISTA [Concomitant]
  3. MIRALAX [Concomitant]
  4. CITRUCEL [Concomitant]
  5. VITAMINS [Concomitant]

REACTIONS (1)
  - OROPHARYNGEAL PAIN [None]
